FAERS Safety Report 5716530-6 (Version None)
Quarter: 2008Q2

REPORT INFORMATION
  Report Type: 
  Country: None (occurrence: None)
  Receive Date: 20080424
  Receipt Date: 20080416
  Transmission Date: 20081010
  Serious: Yes (Other)
  Sender: FDA-Public Use
  Company Number: US-LLY01-US200601002769

PATIENT
  Sex: Female
  Weight: 70.294 kg

DRUGS (12)
  1. BYETTA [Suspect]
     Indication: TYPE 2 DIABETES MELLITUS
     Dosage: 5 UG, 2/D
     Route: 058
     Dates: start: 20051101, end: 20051201
  2. BYETTA [Suspect]
     Dosage: 10 UG, 2/D
     Route: 058
     Dates: start: 20051201
  3. LANTUS [Concomitant]
  4. GLUCOPHAGE [Concomitant]
     Dosage: UNK, UNK
     Dates: end: 20060106
  5. GLIPIZIDE [Concomitant]
     Dosage: UNK, UNK
  6. ACTOS [Concomitant]
     Dosage: UNK, UNK
     Dates: end: 20060106
  7. NEXIUM                                  /UNK/ [Concomitant]
     Dosage: UNK, UNK
     Dates: start: 20010101
  8. STARLIX [Concomitant]
  9. PRINIVIL [Concomitant]
  10. SYNTHROID [Concomitant]
  11. CLONAZEPAM [Concomitant]
  12. LIPITOR [Concomitant]
     Dates: end: 20060106

REACTIONS (5)
  - BLOOD GLUCOSE DECREASED [None]
  - HEPATIC ENZYME INCREASED [None]
  - IRON DEFICIENCY ANAEMIA [None]
  - PANCREATITIS ACUTE [None]
  - PHARYNGOLARYNGEAL PAIN [None]
